FAERS Safety Report 5732465-7 (Version None)
Quarter: 2008Q2

REPORT INFORMATION
  Report Type: 
  Country: None (occurrence: None)
  Receive Date: 20080508
  Receipt Date: 20080429
  Transmission Date: 20081010
  Serious: Yes (Hospitalization, Other)
  Sender: FDA-Public Use
  Company Number: US-AMGEN-QUU276142

PATIENT
  Sex: Female
  Weight: 60.4 kg

DRUGS (11)
  1. ENBREL [Suspect]
     Indication: RHEUMATOID ARTHRITIS
     Route: 058
     Dates: start: 20070408
  2. PLAQUENIL [Concomitant]
     Route: 048
     Dates: start: 20050101
  3. SOMA [Concomitant]
     Route: 048
  4. NORCO [Concomitant]
  5. NEURONTIN [Concomitant]
     Route: 048
  6. MORPHINE [Concomitant]
     Route: 048
  7. CALAN [Concomitant]
     Route: 048
  8. LISINOPRIL [Concomitant]
     Route: 048
  9. CELEXA [Concomitant]
  10. WELLBUTRIN [Concomitant]
  11. LEVOTHYROXINE SODIUM [Concomitant]
     Route: 048

REACTIONS (7)
  - BACK PAIN [None]
  - CHRONIC OBSTRUCTIVE PULMONARY DISEASE [None]
  - FATIGUE [None]
  - INFLUENZA [None]
  - NEOPLASM [None]
  - PNEUMONIA PRIMARY ATYPICAL [None]
  - RHEUMATOID ARTHRITIS [None]
